FAERS Safety Report 8795079 (Version 6)
Quarter: 2012Q4

REPORT INFORMATION
  Report Type: Report from Study
  Country: CA (occurrence: CA)
  Receive Date: 20120918
  Receipt Date: 20121105
  Transmission Date: 20130627
  Serious: Yes (Death, Hospitalization, Other)
  Sender: FDA-Public Use
  Company Number: CA-ROCHE-1122321

PATIENT
  Age: 67 Year
  Sex: Male
  Weight: 61 kg

DRUGS (9)
  1. VEMURAFENIB [Suspect]
     Indication: METASTATIC MALIGNANT MELANOMA
     Route: 048
     Dates: start: 20120817, end: 201210
  2. VEMURAFENIB [Suspect]
     Route: 048
     Dates: start: 20120920, end: 20121022
  3. DEXAMETHASONE [Concomitant]
     Indication: METASTASES TO CENTRAL NERVOUS SYSTEM
     Route: 048
  4. OMEPRAZOLE [Concomitant]
     Indication: HYPERCHLORHYDRIA
     Route: 048
  5. IMOVANCE [Concomitant]
     Indication: SLEEP DISORDER
     Route: 048
  6. ATIVAN [Concomitant]
     Route: 060
  7. PERCOCET [Concomitant]
  8. LORAZEPAM [Concomitant]
     Indication: ANXIETY
     Dosage: Q6H prn
     Route: 048
     Dates: start: 20120909
  9. MYCOSTATIN [Concomitant]
     Indication: CANDIDIASIS
     Dosage: Dose: QID
     Route: 048
     Dates: start: 20120908

REACTIONS (9)
  - Disease progression [Fatal]
  - Delirium [Not Recovered/Not Resolved]
  - Cerebral haemorrhage [Not Recovered/Not Resolved]
  - Decreased appetite [Recovering/Resolving]
  - Pupils unequal [Recovering/Resolving]
  - Fatigue [Recovered/Resolved]
  - Weight decreased [Not Recovered/Not Resolved]
  - Nausea [Unknown]
  - Diarrhoea [Unknown]
